FAERS Safety Report 8599402-1 (Version None)
Quarter: 2012Q3

REPORT INFORMATION
  Report Type: 
  Country: None (occurrence: None)
  Receive Date: 20120816
  Receipt Date: 20120813
  Transmission Date: 20120928
  Serious: Yes (Hospitalization)
  Sender: FDA-Public Use
  Company Number: PHEH2012US015866

PATIENT
  Sex: Female

DRUGS (4)
  1. GILENYA [Suspect]
     Indication: MULTIPLE SCLEROSIS
     Dosage: 0.5 MG, QD
     Route: 048
  2. PROVIGIL [Concomitant]
  3. NEURONTIN [Concomitant]
  4. ZANTAC [Concomitant]

REACTIONS (2)
  - DYSPNOEA [None]
  - THROAT TIGHTNESS [None]
